FAERS Safety Report 9328935 (Version 1)
Quarter: 2013Q2

REPORT INFORMATION
  Report Type: Spontaneous
  Country: US (occurrence: US)
  Receive Date: 20130604
  Receipt Date: 20130604
  Transmission Date: 20140414
  Serious: No
  Sender: FDA-Public Use
  Company Number: US-SANOFI-AVENTIS-2013SA039439

PATIENT
  Age: 80 Year
  Sex: Female

DRUGS (4)
  1. LANTUS SOLOSTAR [Suspect]
     Dosage: DOSE:10 UNIT(S)
     Route: 065
     Dates: start: 20130403
  2. SOLOSTAR [Suspect]
     Dates: start: 20130403
  3. LEVOTHYROXINE [Concomitant]
  4. GLYBURIDE [Concomitant]

REACTIONS (5)
  - Skin exfoliation [Unknown]
  - Pain [Unknown]
  - Pain in extremity [Unknown]
  - Blood glucose increased [Unknown]
  - Glycosylated haemoglobin increased [Unknown]
